FAERS Safety Report 24854798 (Version 1)
Quarter: 2025Q1

REPORT INFORMATION
  Report Type: Spontaneous
  Country: CL (occurrence: CL)
  Receive Date: 20250117
  Receipt Date: 20250117
  Transmission Date: 20250409
  Serious: No
  Sender: ALKEM
  Company Number: CL-ALKEM LABORATORIES LIMITED-CL-ALKEM-2024-12624

PATIENT
  Sex: Female

DRUGS (1)
  1. VIGABATRIN [Suspect]
     Active Substance: VIGABATRIN
     Route: 065

REACTIONS (1)
  - Drug ineffective [Unknown]
